FAERS Safety Report 8791843 (Version 2)
Quarter: 2013Q2

REPORT INFORMATION
  Report Type: Report from Study
  Country: US (occurrence: US)
  Receive Date: 20120918
  Receipt Date: 20130430
  Transmission Date: 20140414
  Serious: Yes (Other)
  Sender: FDA-Public Use
  Company Number: US-PURDUE-USA-2012-0089661

PATIENT
  Age: 66 Year
  Sex: Female

DRUGS (3)
  1. OXYCONTIN (NDA 22-272) [Suspect]
     Indication: PAIN
     Dosage: 30 MG, Q12H
     Route: 048
  2. OXYCONTIN (NDA 22-272) [Suspect]
     Dosage: 30 MG, Q8H
     Route: 048
  3. OXYCONTIN (NDA 22-272) [Suspect]
     Dosage: 40 MG, TID
     Route: 048

REACTIONS (5)
  - Thyroid cancer [Not Recovered/Not Resolved]
  - Arthralgia [Unknown]
  - Abasia [Unknown]
  - Pain [Not Recovered/Not Resolved]
  - Inadequate analgesia [Not Recovered/Not Resolved]
